FAERS Safety Report 8557667-6 (Version None)
Quarter: 2012Q3

REPORT INFORMATION
  Report Type: 
  Country: None (occurrence: None)
  Receive Date: 20120801
  Receipt Date: 20120718
  Transmission Date: 20120928
  Serious: Yes (Hospitalization)
  Sender: FDA-Public Use
  Company Number: FR-ELI_LILLY_AND_COMPANY-FR201201002952

PATIENT
  Sex: Male

DRUGS (8)
  1. ABILIFY [Concomitant]
     Indication: BIPOLAR DISORDER
     Dosage: UNK
     Route: 048
     Dates: start: 20091106, end: 20110401
  2. TERCIAN [Concomitant]
     Indication: MAJOR DEPRESSION
     Dosage: 125 MG, QD
     Route: 048
     Dates: start: 20001001
  3. MIRTAZAPINE [Concomitant]
     Indication: DEPRESSION
     Dosage: 15 MG, QD
     Route: 048
     Dates: start: 20091106
  4. OXAZEPAM [Concomitant]
     Indication: ANXIETY
     Dosage: 50 MG, QD
     Route: 048
     Dates: start: 20001001
  5. ZYPREXA [Concomitant]
     Indication: BIPOLAR DISORDER
     Dosage: 10 MG, QD
     Route: 048
     Dates: start: 20001001, end: 20091106
  6. IMOVANE [Concomitant]
     Indication: INSOMNIA
     Dosage: UNK, PRN
     Route: 048
     Dates: start: 20091106
  7. NOCTRAN 10 [Concomitant]
     Indication: INSOMNIA
     Dosage: 10 MG, QD
     Route: 048
     Dates: start: 20001001, end: 20091001
  8. CYMBALTA [Suspect]
     Indication: DEPRESSION
     Dosage: 60 MG, QD
     Route: 048
     Dates: start: 20080401, end: 20091106

REACTIONS (1)
  - PATHOLOGICAL GAMBLING [None]
